FAERS Safety Report 5216759-X (Version None)
Quarter: 2007Q1

REPORT INFORMATION
  Report Type: 
  Country: None (occurrence: None)
  Receive Date: 20070118
  Receipt Date: 20070104
  Transmission Date: 20070707
  Serious: Yes (Hospitalization, Other)
  Sender: FDA-Public Use
  Company Number: 2007RR-05122

PATIENT
  Age: 81 Year
  Sex: Female

DRUGS (8)
  1. FUROSEMIDE [Suspect]
     Indication: CARDIAC FAILURE
     Dosage: ORAL
     Route: 048
  2. ASPIRIN [Concomitant]
  3. CLOPIDOGREL [Concomitant]
  4. ISOSORBIDE MONONITRATE [Concomitant]
  5. LANSOPRAZOLE [Concomitant]
  6. PERINDOPRIL ERBUMINE [Concomitant]
  7. SALBUTAMOL [Concomitant]
  8. SIMVASTATIN [Concomitant]

REACTIONS (3)
  - DEHYDRATION [None]
  - FALL [None]
  - ORTHOSTATIC HYPOTENSION [None]
